FAERS Safety Report 20336320 (Version 1)
Quarter: 2022Q1

REPORT INFORMATION
  Report Type: Spontaneous
  Country: CA (occurrence: CA)
  Receive Date: 20220114
  Receipt Date: 20220114
  Transmission Date: 20220423
  Serious: Yes (Other)
  Sender: FDA-Public Use
  Company Number: CA-HLS-202109065

PATIENT
  Age: 53 Year
  Sex: Male

DRUGS (3)
  1. CLOZAPINE [Suspect]
     Active Substance: CLOZAPINE
     Indication: Schizophrenia
     Route: 065
  2. NEUPOGEN [Suspect]
     Active Substance: FILGRASTIM
     Indication: Neutropenia
     Route: 058
  3. NEUPOGEN [Suspect]
     Active Substance: FILGRASTIM
     Indication: Off label use
     Route: 058

REACTIONS (2)
  - Agranulocytosis [Unknown]
  - Off label use [Unknown]
